FAERS Safety Report 5206741-0 (Version None)
Quarter: 2006Q4

REPORT INFORMATION
  Report Type: 
  Country: None (occurrence: None)
  Receive Date: 20061030
  Receipt Date: 20060908
  Transmission Date: 20070319
  Serious: No
  Sender: FDA-Public Use
  Company Number: 257158

PATIENT
  Age: 82 Year
  Sex: Female
  Weight: 60.3 kg

DRUGS (6)
  1. LEVEMIR [Suspect]
     Indication: INSULIN-REQUIRING TYPE II DIABETES MELLITUS
     Dosage: 25 IU, QD, SUBCUTANEOUS
     Route: 058
     Dates: start: 20060801
  2. PRANDIN (REPAGLINIDE) TABLET [Concomitant]
  3. PROPRANOLOL [Concomitant]
  4. DIGOXIN [Concomitant]
  5. DIOVAN [Concomitant]
  6. ZESTRIL [Concomitant]

REACTIONS (1)
  - BLOOD GLUCOSE INCREASED [None]
